FAERS Safety Report 17272700 (Version 1)
Quarter: 2020Q1

REPORT INFORMATION
  Report Type: Spontaneous
  Country: US (occurrence: US)
  Receive Date: 20200115
  Receipt Date: 20200115
  Transmission Date: 20200409
  Serious: No
  Sender: FDA-Public Use
  Company Number: US-PFIZER INC-2019557493

PATIENT
  Age: 56 Year
  Sex: Female

DRUGS (2)
  1. SOMAVERT [Suspect]
     Active Substance: PEGVISOMANT
     Indication: ACROMEGALY
     Dosage: 20 MG, ALTERNATE DAY
     Route: 058
     Dates: start: 20191112
  2. SOMAVERT [Suspect]
     Active Substance: PEGVISOMANT
     Indication: HYPOTHALAMO-PITUITARY DISORDER

REACTIONS (3)
  - Gastrointestinal bacterial overgrowth [Unknown]
  - Off label use [Unknown]
  - Malaise [Unknown]

NARRATIVE: CASE EVENT DATE: 20191112
